FAERS Safety Report 7002945-5 (Version None)
Quarter: 2010Q3

REPORT INFORMATION
  Report Type: 
  Country: None (occurrence: None)
  Receive Date: 20100916
  Receipt Date: 20100903
  Transmission Date: 20110219
  Serious: Yes (Death)
  Sender: FDA-Public Use
  Company Number: 2010AC000506

PATIENT
  Sex: Male

DRUGS (1)
  1. DIGOXIN [Suspect]
     Indication: HEART RATE IRREGULAR
     Dosage: 0.250 MG; QD; PO
     Route: 048
     Dates: start: 20060101, end: 20080219

REACTIONS (4)
  - ECONOMIC PROBLEM [None]
  - HEART RATE IRREGULAR [None]
  - PRODUCT LABEL ISSUE [None]
  - PRODUCT TAMPERING [None]
